FAERS Safety Report 7763177-6 (Version None)
Quarter: 2011Q3

REPORT INFORMATION
  Report Type: 
  Country: None (occurrence: None)
  Receive Date: 20110920
  Receipt Date: 20110913
  Transmission Date: 20111222
  Serious: Yes (Other)
  Sender: FDA-Public Use
  Company Number: PHEH2011US04179

PATIENT
  Age: 56 Year
  Sex: Male

DRUGS (9)
  1. TRILIPIX [Concomitant]
     Dosage: UNK UKN, UNK
  2. GLIMEPIRIDE [Concomitant]
     Dosage: UNK UKN, UNK
  3. GLUCOSAMINE+CHONDROTINE [Concomitant]
     Dosage: UNK UKN, UNK
  4. ACTOS [Concomitant]
     Dosage: UNK UKN, UNK
  5. CALCIUM CARBONATE [Concomitant]
     Dosage: UNK UKN, UNK
  6. COZAAR [Concomitant]
     Dosage: UNK UKN, UNK
  7. METFORMIN HCL [Concomitant]
     Dosage: UNK UKN, UNK
  8. RECLAST [Suspect]
     Dosage: UNK UKN, UNK
     Route: 042
  9. CITRICAL [Concomitant]

REACTIONS (2)
  - ANKLE FRACTURE [None]
  - FALL [None]
